FAERS Safety Report 9158716 (Version 1)
Quarter: 2013Q1

REPORT INFORMATION
  Report Type: Spontaneous
  Country: IT (occurrence: IT)
  Receive Date: 20130312
  Receipt Date: 20130312
  Transmission Date: 20140127
  Serious: Yes (Hospitalization)
  Sender: FDA-Public Use
  Company Number: IT-MYLANLABS-2013S1004785

PATIENT
  Age: 37 Year
  Sex: Female

DRUGS (5)
  1. OLANZAPINE [Suspect]
     Indication: PRODUCT USED FOR UNKNOWN INDICATION
     Route: 048
     Dates: start: 20130225, end: 20130225
  2. MIRTAZAPINE [Suspect]
     Indication: PRODUCT USED FOR UNKNOWN INDICATION
     Route: 048
     Dates: start: 20130225, end: 20130225
  3. TEGRETOL [Suspect]
     Indication: PRODUCT USED FOR UNKNOWN INDICATION
     Route: 048
     Dates: start: 20130225, end: 20130225
  4. RISPERDAL [Concomitant]
     Indication: AFFECTIVE DISORDER
     Dosage: TABLET
  5. AMISULPRIDE [Concomitant]
     Indication: AFFECTIVE DISORDER

REACTIONS (5)
  - Intentional overdose [Recovered/Resolved]
  - Confusional state [Recovered/Resolved]
  - Sopor [Recovered/Resolved]
  - Intentional self-injury [Recovered/Resolved]
  - Drug abuse [Recovered/Resolved]
